FAERS Safety Report 8621695-2 (Version None)
Quarter: 2012Q3

REPORT INFORMATION
  Report Type: 
  Country: None (occurrence: None)
  Receive Date: 20120821
  Receipt Date: 20120821
  Transmission Date: 20120928
  Serious: Yes (Other)
  Sender: FDA-Public Use
  Company Number: None

PATIENT
  Age: 59 Year
  Sex: Male
  Weight: 95.2554 kg

DRUGS (1)
  1. AXIRON [Suspect]
     Indication: HYPOGONADISM
     Dosage: 1 SWAB, DAILY, TOP
     Route: 061
     Dates: start: 20120729, end: 20120817

REACTIONS (3)
  - PRODUCT QUALITY ISSUE [None]
  - DEVICE DIFFICULT TO USE [None]
  - INCORRECT DOSE ADMINISTERED [None]
